FAERS Safety Report 17468062 (Version 2)
Quarter: 2020Q1

REPORT INFORMATION
  Report Type: Spontaneous
  Country: US (occurrence: US)
  Receive Date: 20200227
  Receipt Date: 20200305
  Transmission Date: 20200409
  Serious: No
  Sender: FDA-Public Use
  Company Number: US-009507513-2002USA010265

PATIENT
  Sex: Female
  Weight: 59.87 kg

DRUGS (1)
  1. FOSAMAX [Suspect]
     Active Substance: ALENDRONATE SODIUM
     Dosage: EVERY DAY FOR 14 OR 15 YEARS
     Dates: start: 2005

REACTIONS (1)
  - Oesophageal disorder [Unknown]
